FAERS Safety Report 15365106 (Version 1)
Quarter: 2018Q4

REPORT INFORMATION
  Report Type: Spontaneous
  Country: US (occurrence: US)
  Receive Date: 20180910
  Receipt Date: 20180910
  Transmission Date: 20190204
  Serious: Yes (Other)
  Sender: FDA-Public Use
  Company Number: US-VIVIMED-2018SP007429

PATIENT

DRUGS (2)
  1. METRONIDAZOLE. [Suspect]
     Active Substance: METRONIDAZOLE
     Indication: AMOEBIC COLITIS
     Dosage: UNK
     Route: 065
  2. METRONIDAZOLE. [Suspect]
     Active Substance: METRONIDAZOLE
     Indication: HEPATIC AMOEBIASIS
     Dosage: UNK
     Route: 065

REACTIONS (3)
  - Hepatic amoebiasis [Unknown]
  - Large intestine perforation [Unknown]
  - Disease progression [Unknown]
